FAERS Safety Report 18197359 (Version 2)
Quarter: 2020Q3

REPORT INFORMATION
  Report Type: Spontaneous
  Country: US (occurrence: US)
  Receive Date: 20200826
  Receipt Date: 20200924
  Transmission Date: 20201103
  Serious: Yes (Other)
  Sender: FDA-Public Use
  Company Number: US-SA-2020SA221614

PATIENT

DRUGS (1)
  1. DULCOLAX NOS [Suspect]
     Active Substance: BISACODYL OR DOCUSATE SODIUM
     Indication: CONSTIPATION
     Dosage: 1 DF (1 PILL)
     Route: 065
     Dates: start: 20200818

REACTIONS (6)
  - Illness [Unknown]
  - Near death experience [Unknown]
  - Vomiting [Unknown]
  - Pain [Unknown]
  - Unevaluable event [Unknown]
  - Presyncope [Unknown]

NARRATIVE: CASE EVENT DATE: 2020
